FAERS Safety Report 6348605-5 (Version None)
Quarter: 2009Q3

REPORT INFORMATION
  Report Type: 
  Country: None (occurrence: None)
  Receive Date: 20090911
  Receipt Date: 20090902
  Transmission Date: 20100115
  Serious: Yes (Death, Hospitalization)
  Sender: FDA-Public Use
  Company Number: JP-ROCHE-654722

PATIENT
  Age: 52 Year
  Sex: Female

DRUGS (1)
  1. XELODA [Suspect]
     Indication: BREAST CANCER METASTATIC
     Dosage: DRUG REPORTED AS : XELODA 300
     Route: 048

REACTIONS (3)
  - CARDIAC TAMPONADE [None]
  - DISEASE PROGRESSION [None]
  - LYMPHANGIOSIS CARCINOMATOSA [None]
